FAERS Safety Report 9319587 (Version 6)
Quarter: 2013Q4

REPORT INFORMATION
  Report Type: Spontaneous
  Country: US (occurrence: US)
  Receive Date: 20130530
  Receipt Date: 20131014
  Transmission Date: 20140711
  Serious: Yes (Hospitalization)
  Sender: FDA-Public Use
  Company Number: US-GLAXOSMITHKLINE-A1009794A

PATIENT
  Age: 26 Year
  Sex: Female

DRUGS (1)
  1. FLOLAN [Suspect]
     Indication: COR PULMONALE CHRONIC
     Dosage: 14NGKM CONTINUOUS
     Route: 042
     Dates: start: 20111101

REACTIONS (8)
  - Convulsion [Unknown]
  - Suture rupture [Unknown]
  - Catheter site pruritus [Unknown]
  - Medical device complication [Unknown]
  - Hospitalisation [Not Recovered/Not Resolved]
  - Hip arthroplasty [Unknown]
  - Hip surgery [Unknown]
  - Arthralgia [Unknown]
